FAERS Safety Report 19959669 (Version 1)
Quarter: 2021Q4

REPORT INFORMATION
  Report Type: Spontaneous
  Country: US (occurrence: US)
  Receive Date: 20211013
  Receipt Date: 20211013
  Transmission Date: 20220303
  Serious: Yes (Death)
  Sender: FDA-Public Use
  Company Number: None

PATIENT
  Sex: Female

DRUGS (1)
  1. BOTOX [Suspect]
     Active Substance: ONABOTULINUMTOXINA
     Indication: Migraine
     Dosage: ?OTHER DOSE:155 UNITS ;?OTHER FREQUENCY:EVERY 3 MONTHS;
     Route: 030
     Dates: start: 202104

REACTIONS (1)
  - COVID-19 [None]
